FAERS Safety Report 9228033 (Version 1)
Quarter: 2013Q2

REPORT INFORMATION
  Report Type: Spontaneous
  Country: US (occurrence: US)
  Receive Date: 20130412
  Receipt Date: 20130412
  Transmission Date: 20140414
  Serious: No
  Sender: FDA-Public Use
  Company Number: US-GLAXOSMITHKLINE-A1005706A

PATIENT
  Age: 60 Year
  Sex: Male

DRUGS (7)
  1. JALYN [Suspect]
     Indication: PROSTATOMEGALY
     Dosage: .5MG PER DAY
     Route: 048
     Dates: start: 201208, end: 20121117
  2. TAMSULOSIN [Concomitant]
  3. LEVOXYL [Concomitant]
  4. AVODART [Concomitant]
  5. TRAMADOL HCL [Concomitant]
  6. CYCLOBENZAPRINE [Concomitant]
  7. NEXIUM [Concomitant]

REACTIONS (3)
  - Pruritus [Not Recovered/Not Resolved]
  - Paraesthesia [Unknown]
  - Abdominal discomfort [Unknown]
